FAERS Safety Report 9335340 (Version 1)
Quarter: 2013Q2

REPORT INFORMATION
  Report Type: Spontaneous
  Country: GB (occurrence: GB)
  Receive Date: 20130606
  Receipt Date: 20130606
  Transmission Date: 20140414
  Serious: Yes (Other)
  Sender: FDA-Public Use
  Company Number: GB-MICRO LABS LIMITED-BB2013-GB-00310

PATIENT
  Age: 74 Year
  Sex: Female
  Weight: 58.51 kg

DRUGS (15)
  1. SIMVASTATIN [Suspect]
     Indication: CEREBROVASCULAR ACCIDENT
     Route: 048
  2. SIMVASTATIN [Suspect]
     Indication: HYPERCHOLESTEROLAEMIA
  3. ATORVASTATIN [Suspect]
     Indication: CEREBROVASCULAR ACCIDENT
     Route: 048
  4. ATORVASTATIN [Suspect]
     Indication: HYPERCHOLESTEROLAEMIA
  5. BEZAFIBRATE [Suspect]
     Indication: CEREBROVASCULAR ACCIDENT
     Route: 048
  6. BEZAFIBRATE [Suspect]
     Indication: HYPERCHOLESTEROLAEMIA
  7. LIPITOR [Suspect]
     Indication: CEREBROVASCULAR ACCIDENT
     Route: 048
  8. LIPITOR [Suspect]
     Indication: HYPERCHOLESTEROLAEMIA
  9. PRAVASTATIN [Suspect]
     Indication: CEREBROVASCULAR ACCIDENT
     Route: 048
  10. PRAVASTATIN [Suspect]
     Indication: HYPERCHOLESTEROLAEMIA
  11. BENDROFLUMETHIAZIDE [Concomitant]
     Indication: PRODUCT USED FOR UNKNOWN INDICATION
     Route: 065
  12. BISOPROLOL FUMARATE [Concomitant]
     Indication: PRODUCT USED FOR UNKNOWN INDICATION
     Route: 065
  13. CLOPIDOGREL HYDROCHLORIDE [Concomitant]
     Indication: PRODUCT USED FOR UNKNOWN INDICATION
     Route: 065
  14. LEVOTHYROXINE SODIUM ANHYDROUS [Concomitant]
     Indication: PRODUCT USED FOR UNKNOWN INDICATION
     Route: 065
  15. LOSARTAN POTASSIUM [Concomitant]
     Indication: PRODUCT USED FOR UNKNOWN INDICATION
     Route: 065

REACTIONS (3)
  - Vision blurred [Recovered/Resolved]
  - Nausea [Recovered/Resolved]
  - Myalgia [Recovered/Resolved with Sequelae]
